FAERS Safety Report 12760823 (Version 1)
Quarter: 2016Q3

REPORT INFORMATION
  Report Type: Report from Study
  Country: DE (occurrence: DE)
  Receive Date: 20160919
  Receipt Date: 20160919
  Transmission Date: 20161109
  Serious: Yes (Hospitalization)
  Sender: FDA-Public Use
  Company Number: US-ASTRAZENECA-2016SE99544

PATIENT
  Age: 1 Year
  Sex: Female

DRUGS (12)
  1. SYNAGIS [Suspect]
     Active Substance: PALIVIZUMAB
     Indication: ANTIVIRAL PROPHYLAXIS
     Dosage: 150 MG
     Route: 030
     Dates: start: 20091208, end: 20091208
  2. SYNAGIS [Suspect]
     Active Substance: PALIVIZUMAB
     Indication: HEART DISEASE CONGENITAL
     Dosage: 150 MG
     Route: 030
     Dates: start: 20100107, end: 20100107
  3. SYNAGIS [Suspect]
     Active Substance: PALIVIZUMAB
     Indication: HEART DISEASE CONGENITAL
     Dosage: 150 MG
     Route: 030
     Dates: start: 20100211, end: 20100211
  4. SYNAGIS [Suspect]
     Active Substance: PALIVIZUMAB
     Indication: ANTIVIRAL PROPHYLAXIS
     Route: 030
     Dates: start: 20090325, end: 20090325
  5. SYNAGIS [Suspect]
     Active Substance: PALIVIZUMAB
     Indication: HEART DISEASE CONGENITAL
     Dosage: 150 MG
     Route: 030
     Dates: start: 20100408, end: 20100408
  6. SYNAGIS [Suspect]
     Active Substance: PALIVIZUMAB
     Indication: ANTIVIRAL PROPHYLAXIS
     Dosage: 150 MG
     Route: 030
     Dates: start: 20100408, end: 20100408
  7. SYNAGIS [Suspect]
     Active Substance: PALIVIZUMAB
     Indication: HEART DISEASE CONGENITAL
     Route: 030
     Dates: start: 20090325, end: 20090325
  8. SYNAGIS [Suspect]
     Active Substance: PALIVIZUMAB
     Indication: HEART DISEASE CONGENITAL
     Dosage: 100 MG
     Route: 030
     Dates: start: 20091006, end: 20091006
  9. SYNAGIS [Suspect]
     Active Substance: PALIVIZUMAB
     Indication: HEART DISEASE CONGENITAL
     Dosage: 150 MG
     Route: 030
     Dates: start: 20091208, end: 20091208
  10. SYNAGIS [Suspect]
     Active Substance: PALIVIZUMAB
     Indication: ANTIVIRAL PROPHYLAXIS
     Dosage: 150 MG
     Route: 030
     Dates: start: 20100211, end: 20100211
  11. SYNAGIS [Suspect]
     Active Substance: PALIVIZUMAB
     Indication: ANTIVIRAL PROPHYLAXIS
     Dosage: 100 MG
     Route: 030
     Dates: start: 20091006, end: 20091006
  12. SYNAGIS [Suspect]
     Active Substance: PALIVIZUMAB
     Indication: ANTIVIRAL PROPHYLAXIS
     Dosage: 150 MG
     Route: 030
     Dates: start: 20100107, end: 20100107

REACTIONS (1)
  - Pneumonia [Recovered/Resolved]

NARRATIVE: CASE EVENT DATE: 20100322
